FAERS Safety Report 9053660 (Version 1)
Quarter: 2013Q1

REPORT INFORMATION
  Report Type: Spontaneous
  Country: US (occurrence: None)
  Receive Date: 20130201
  Receipt Date: 20130201
  Transmission Date: 20140127
  Serious: Yes (Other)
  Sender: FDA-Public Use
  Company Number: None

PATIENT
  Age: 66 Year
  Sex: Male

DRUGS (9)
  1. PREDNISONE [Suspect]
     Indication: PROPHYLAXIS
     Route: 048
     Dates: start: 20120223, end: 20130129
  2. PREDNISONE [Suspect]
     Indication: ADVERSE DRUG REACTION
     Route: 048
     Dates: start: 20120223, end: 20130129
  3. ZYTIGA [Concomitant]
  4. CALTRATE [Concomitant]
  5. VIT D3 [Concomitant]
  6. OMACOR [Concomitant]
  7. SYNTHROID [Concomitant]
  8. TRILIPIX [Concomitant]
  9. VALTURNA [Concomitant]

REACTIONS (2)
  - Muscle atrophy [None]
  - Fungal infection [None]
